FAERS Safety Report 4473914-4 (Version None)
Quarter: 2004Q4

REPORT INFORMATION
  Report Type: 
  Country: None (occurrence: None)
  Receive Date: 20041008
  Receipt Date: 20040916
  Transmission Date: 20050328
  Serious: Yes (Other)
  Sender: FDA-Public Use
  Company Number: USA040978516

PATIENT
  Age: 80 Year
  Sex: Female

DRUGS (2)
  1. EVISTA [Suspect]
     Indication: OSTEOPOROSIS PROPHYLAXIS
     Dates: start: 20020101
  2. VAGIFEM [Concomitant]

REACTIONS (1)
  - ENDOMETRIAL CANCER [None]
